FAERS Safety Report 25040012 (Version 2)
Quarter: 2025Q2

REPORT INFORMATION
  Report Type: Report from Study
  Country: CA (occurrence: CA)
  Receive Date: 20250305
  Receipt Date: 20250423
  Transmission Date: 20250717
  Serious: No
  Sender: JAZZ
  Company Number: CA-JAZZ PHARMACEUTICALS-2025-CA-005630

PATIENT
  Sex: Male

DRUGS (1)
  1. EPIDIOLEX [Suspect]
     Active Substance: CANNABIDIOL
     Indication: Epilepsy
     Dosage: 3.86 MILLILITER, BID

REACTIONS (1)
  - Seizure [Unknown]
